FAERS Safety Report 17836668 (Version 2)
Quarter: 2020Q2

REPORT INFORMATION
  Report Type: Spontaneous
  Country: US (occurrence: US)
  Receive Date: 20200528
  Receipt Date: 20200602
  Transmission Date: 20200714
  Serious: Yes (Other)
  Sender: FDA-Public Use
  Company Number: US-PFIZER INC-2020209483

PATIENT
  Sex: Male

DRUGS (1)
  1. CELEBREX [Suspect]
     Active Substance: CELECOXIB
     Dosage: 200MG OF CELECOXIB FOR FOUR OR FIVE DAYS IN A ROW

REACTIONS (3)
  - Lymphoma [Unknown]
  - Bone disorder [Unknown]
  - Inflammation [Unknown]
